FAERS Safety Report 5387211-6 (Version None)
Quarter: 2007Q3

REPORT INFORMATION
  Report Type: 
  Country: None (occurrence: None)
  Receive Date: 20070711
  Receipt Date: 20070628
  Transmission Date: 20080115
  Serious: Yes (Other)
  Sender: FDA-Public Use
  Company Number: 2007SI000162

PATIENT
  Age: 56 Year
  Sex: Male

DRUGS (9)
  1. ACITRETIN [Suspect]
     Indication: ECZEMA
     Dosage: SEE IMAGE
     Route: 048
     Dates: start: 20060801, end: 20070131
  2. ACITRETIN [Suspect]
     Indication: ECZEMA
     Dosage: SEE IMAGE
     Route: 048
     Dates: start: 20060801, end: 20070131
  3. GLUCOSAMINE [Concomitant]
  4. MAGNESIUM HYDROXIDE TAB [Concomitant]
  5. VITAMINS WITH MINERALS [Concomitant]
  6. UNIKALK PLUS [Concomitant]
  7. KYOLIC [Concomitant]
  8. LOCOBASE LPL [Concomitant]
  9. VASELINE [Concomitant]

REACTIONS (9)
  - ALOPECIA [None]
  - ARTHRALGIA [None]
  - DIZZINESS [None]
  - DRY SKIN [None]
  - EAR HAEMORRHAGE [None]
  - EPISTAXIS [None]
  - HEADACHE [None]
  - MYALGIA [None]
  - SKIN EXFOLIATION [None]
